FAERS Safety Report 21572270 (Version 1)
Quarter: 2022Q4

REPORT INFORMATION
  Report Type: Spontaneous
  Country: US (occurrence: None)
  Receive Date: 20221108
  Receipt Date: 20221108
  Transmission Date: 20230113
  Serious: Yes (Death, Life-Threatening, Hospitalization, Disabling)
  Sender: FDA-Public Use
  Company Number: None

PATIENT
  Age: 36 Year
  Sex: Female
  Weight: 63 kg

DRUGS (11)
  1. DIAZEPAM [Suspect]
     Active Substance: DIAZEPAM
     Indication: Withdrawal syndrome
     Dosage: OTHER QUANTITY : 2.5 CAPSULE(S);?FREQUENCY : EVERY 8 HOURS;?
     Route: 048
     Dates: end: 20210901
  2. CLONAZEPAM [Suspect]
     Active Substance: CLONAZEPAM
     Indication: Withdrawal syndrome
     Dosage: OTHER QUANTITY : 1 TABLET(S);?FREQUENCY : DAILY;?
     Route: 048
     Dates: start: 20180515, end: 20180603
  3. transcranial magnetic stimulation [Concomitant]
  4. GABAPENTIN [Concomitant]
     Active Substance: GABAPENTIN
  5. NORTRIPTYLINE [Concomitant]
     Active Substance: NORTRIPTYLINE
  6. DEPAKOTE [Concomitant]
     Active Substance: DIVALPROEX SODIUM
  7. TEGRETOL [Concomitant]
     Active Substance: CARBAMAZEPINE
  8. ZOLOFT [Concomitant]
     Active Substance: SERTRALINE HYDROCHLORIDE
  9. REMERON [Concomitant]
     Active Substance: MIRTAZAPINE
  10. KETAMINE [Concomitant]
     Active Substance: KETAMINE
  11. SEROQUEL [Concomitant]
     Active Substance: QUETIAPINE FUMARATE

REACTIONS (20)
  - Hallucination, auditory [None]
  - Irritability [None]
  - Panic attack [None]
  - Pain [None]
  - Vomiting [None]
  - Photophobia [None]
  - Discomfort [None]
  - Hyponatraemia [None]
  - Dry mouth [None]
  - Weight decreased [None]
  - Neuralgia [None]
  - Sensory disturbance [None]
  - Muscle atrophy [None]
  - Thinking abnormal [None]
  - Cognitive disorder [None]
  - Insomnia [None]
  - Suicidal ideation [None]
  - Crying [None]
  - Pain [None]
  - Emotional distress [None]

NARRATIVE: CASE EVENT DATE: 20180517
